FAERS Safety Report 4520510-6 (Version None)
Quarter: 2004Q4

REPORT INFORMATION
  Report Type: 
  Country: None (occurrence: None)
  Receive Date: 20041203
  Receipt Date: 20041120
  Transmission Date: 20050328
  Serious: Yes (Disabling)
  Sender: FDA-Public Use
  Company Number: 2004066417

PATIENT
  Age: 64 Year
  Sex: Female
  Weight: 83.0083 kg

DRUGS (9)
  1. LIPITOR [Suspect]
     Indication: BLOOD CHOLESTEROL
     Dosage: 1 IN 1 D, ORAL
     Route: 048
     Dates: start: 20030101, end: 20040101
  2. LIPITOR [Suspect]
     Indication: HYPERLIPIDAEMIA
     Dosage: 1 IN 1 D, ORAL
     Route: 048
     Dates: start: 20030101, end: 20040101
  3. LIPITOR [Suspect]
     Indication: LOW DENSITY LIPOPROTEIN INCREASED
     Dosage: 1 IN 1 D, ORAL
     Route: 048
     Dates: start: 20030101, end: 20040101
  4. NORVASC [Suspect]
     Indication: BLOOD PRESSURE
     Dates: start: 20040401, end: 20040702
  5. PAROXETINE HCL [Suspect]
     Indication: DEPRESSION
     Dosage: ORAL
     Route: 048
     Dates: start: 19940101
  6. PAROXETINE HCL [Concomitant]
  7. . [Concomitant]
  8. AMLODIPINE BESYLATE [Concomitant]
  9. SERETIDE MITE (FLUTICASONE PROPIONATE, SALMETEROL XINAFOATE) [Concomitant]

REACTIONS (21)
  - ABASIA [None]
  - ASTHENIA [None]
  - ASTHMA [None]
  - DECREASED ACTIVITY [None]
  - DIFFICULTY IN WALKING [None]
  - DRUG INEFFECTIVE [None]
  - FATIGUE [None]
  - FIBROMYALGIA [None]
  - GROIN PAIN [None]
  - IRRITABLE BOWEL SYNDROME [None]
  - MIDDLE INSOMNIA [None]
  - MUSCLE DISORDER [None]
  - MYALGIA [None]
  - NEURALGIA [None]
  - OEDEMA PERIPHERAL [None]
  - PAIN IN EXTREMITY [None]
  - RHINITIS ALLERGIC [None]
  - SEBORRHOEIC KERATOSIS [None]
  - SKIN HYPERPIGMENTATION [None]
  - SKIN LESION [None]
  - TENDONITIS [None]
